FAERS Safety Report 5070348-9 (Version None)
Quarter: 2006Q3

REPORT INFORMATION
  Report Type: 
  Country: None (occurrence: None)
  Receive Date: 20060731
  Receipt Date: 20060522
  Transmission Date: 20061208
  Serious: Yes (Other)
  Sender: FDA-Public Use
  Company Number: CHNY2006BR01618

PATIENT
  Age: 76 Year
  Sex: Male
  Weight: 80 kg

DRUGS (1)
  1. TRIMEDAL (NCH)(VITAMIN C, TROTERUTIN, ACETAMINOPHEN (PARACETAMOL), PHE [Suspect]
     Dosage: ORAL
     Route: 048

REACTIONS (3)
  - DYSKINESIA [None]
  - SOMNOLENCE [None]
  - SPEECH DISORDER [None]
